FAERS Safety Report 5168172-1 (Version None)
Quarter: 2006Q4

REPORT INFORMATION
  Report Type: 
  Country: None (occurrence: None)
  Receive Date: 20061208
  Receipt Date: 20061101
  Transmission Date: 20070319
  Serious: Yes (Other)
  Sender: FDA-Public Use
  Company Number: 2006GB01983

PATIENT
  Age: 656 Month
  Sex: Female
  Weight: 80 kg

DRUGS (6)
  1. ZAFIRLUKAST [Suspect]
     Indication: ASTHMA
     Route: 048
     Dates: start: 20050101, end: 20061102
  2. ESCITALOPRAM OXALATE [Concomitant]
     Indication: DEPRESSION
     Route: 048
     Dates: start: 20060901
  3. OMEPRAZOLE [Concomitant]
     Indication: GASTROOESOPHAGEAL REFLUX DISEASE
     Route: 048
  4. LEVOTHYROXINE SODIUM [Concomitant]
     Route: 048
  5. METOCLOPRAMIDE [Concomitant]
     Indication: NAUSEA
     Route: 048
  6. COAMILOZIDE [Concomitant]

REACTIONS (1)
  - THROMBOCYTOPENIA [None]
